FAERS Safety Report 14868806 (Version 3)
Quarter: 2018Q4

REPORT INFORMATION
  Report Type: Spontaneous
  Country: US (occurrence: US)
  Receive Date: 20180509
  Receipt Date: 20181220
  Transmission Date: 20190204
  Serious: No
  Sender: FDA-Public Use
  Company Number: US-PFIZER INC-2018188534

PATIENT
  Age: 62 Year
  Sex: Female

DRUGS (1)
  1. XELJANZ XR [Suspect]
     Active Substance: TOFACITINIB CITRATE
     Dosage: 11 MG, 1X/DAY
     Route: 048

REACTIONS (6)
  - Musculoskeletal pain [Unknown]
  - Pain in extremity [Unknown]
  - Alopecia [Not Recovered/Not Resolved]
  - Sinusitis [Recovering/Resolving]
  - Peripheral swelling [Unknown]
  - Liver function test increased [Unknown]
